FAERS Safety Report 24652127 (Version 1)
Quarter: 2024Q4

REPORT INFORMATION
  Report Type: Report from Study
  Country: US (occurrence: US)
  Receive Date: 20241122
  Receipt Date: 20241122
  Transmission Date: 20250114
  Serious: Yes (Hospitalization)
  Sender: ABBVIE
  Company Number: US-ABBVIE-6011203

PATIENT
  Sex: Female

DRUGS (1)
  1. VENCLEXTA [Suspect]
     Active Substance: VENETOCLAX
     Indication: Acute myeloid leukaemia
     Dosage: TAKE 2 TABLETS BY MOUTH DAILY DAYS 1 TO14 EVERY 28 DAYS?STRENGTH- 100 MG
     Route: 048

REACTIONS (2)
  - Leukaemia [Unknown]
  - Myelodysplastic syndrome [Unknown]
